FAERS Safety Report 7721275-7 (Version None)
Quarter: 2011Q3

REPORT INFORMATION
  Report Type: 
  Country: None (occurrence: None)
  Receive Date: 20110831
  Receipt Date: 20110817
  Transmission Date: 20111222
  Serious: Yes (Hospitalization)
  Sender: FDA-Public Use
  Company Number: PHHY2011DE63238

PATIENT
  Sex: Male
  Weight: 70 kg

DRUGS (16)
  1. TILIDIN [Concomitant]
     Dosage: UNK UKN, UNK
  2. EXELON [Suspect]
     Indication: DEMENTIA
     Dosage: UNK UKN, UNK
     Route: 048
     Dates: start: 20110601, end: 20110606
  3. TRIARESE [Concomitant]
     Dosage: UNK UKN, UNK
     Dates: start: 20110601
  4. TAMSULOSIN HCL [Concomitant]
     Dosage: 4 MG, ONCE DAILY
  5. STALEVO 100 [Concomitant]
     Indication: PARKINSON'S DISEASE
     Dosage: 100 MG IN MORNING 25 IN NOON, 200 MG IN EVENING
     Route: 048
  6. TILIDINE [Concomitant]
     Dosage: UNK UKN, UNK
  7. METFORMIN [Concomitant]
     Dosage: UNK UKN, UNK
  8. RAMIPRIL [Concomitant]
     Dosage: UNK UKN, UNK
     Dates: end: 20110601
  9. NOVALGIN [Concomitant]
     Dosage: UNK UKN, UNK
     Route: 048
  10. ANALGESICS [Concomitant]
     Indication: FALL
     Dosage: UNK UKN, UNK
  11. DOPADURA C [Concomitant]
     Indication: PARKINSON'S DISEASE
     Dosage: UNK UKN, UNK
     Route: 048
  12. LEVODOPA [Concomitant]
     Dosage: UNK UKN, UNK
  13. MELNEURIN [Concomitant]
     Dosage: 25 MG, ONCE DAILY
     Route: 048
  14. ELIGARD [Concomitant]
     Indication: PROSTATE CANCER
     Dosage: UNK UKN, UNK
     Route: 058
  15. TRIARESE [Concomitant]
     Dosage: REDUCED DOSE
  16. ZOMETA [Concomitant]
     Indication: PROSTATE CANCER
     Dosage: UNK UKN, UNK
     Route: 042

REACTIONS (2)
  - FALL [None]
  - SPINAL FRACTURE [None]
